FAERS Safety Report 6526383-4 (Version None)
Quarter: 2009Q4

REPORT INFORMATION
  Report Type: 
  Country: None (occurrence: None)
  Receive Date: 20091229
  Receipt Date: 20091221
  Transmission Date: 20100525
  Serious: Yes (Hospitalization)
  Sender: FDA-Public Use
  Company Number: WAES 0808USA04055

PATIENT
  Age: 71 Year
  Sex: Female
  Weight: 60.782 kg

DRUGS (16)
  1. CAP VORINOSTAT UNK [Suspect]
     Indication: ACUTE MYELOID LEUKAEMIA
     Dosage: 400 MG/ DAILY/ PO; 400 MG/ DAILY/ PO; 400 MG/ DAILY/ PO
     Route: 048
     Dates: start: 20080313, end: 20080326
  2. CAP VORINOSTAT UNK [Suspect]
     Indication: ACUTE MYELOID LEUKAEMIA
     Dosage: 400 MG/ DAILY/ PO; 400 MG/ DAILY/ PO; 400 MG/ DAILY/ PO
     Route: 048
     Dates: start: 20080410, end: 20080423
  3. CAP VORINOSTAT UNK [Suspect]
     Indication: ACUTE MYELOID LEUKAEMIA
     Dosage: 400 MG/ DAILY/ PO; 400 MG/ DAILY/ PO; 400 MG/ DAILY/ PO
     Route: 048
     Dates: start: 20080510, end: 20080523
  4. INFUSION (FORM) DECITABINE UNK [Suspect]
     Indication: ACUTE MYELOID LEUKAEMIA
     Dosage: 35 MG/ DAILY/ IV; 34.8 MG/ DAILY/ IV; 34 MG/ DAILY/ IV
     Route: 042
     Dates: start: 20080308, end: 20080312
  5. INFUSION (FORM) DECITABINE UNK [Suspect]
     Indication: ACUTE MYELOID LEUKAEMIA
     Dosage: 35 MG/ DAILY/ IV; 34.8 MG/ DAILY/ IV; 34 MG/ DAILY/ IV
     Route: 042
     Dates: start: 20080405, end: 20080409
  6. INFUSION (FORM) DECITABINE UNK [Suspect]
     Indication: ACUTE MYELOID LEUKAEMIA
     Dosage: 35 MG/ DAILY/ IV; 34.8 MG/ DAILY/ IV; 34 MG/ DAILY/ IV
     Route: 042
     Dates: start: 20080505, end: 20080509
  7. COMPAZINE [Concomitant]
  8. ACETAMINOPHEN [Concomitant]
  9. ACYCLOVIR [Concomitant]
  10. CALCIUM (UNSPECIFIED) [Concomitant]
  11. DIPHENYHYDRAMINE HYDROCHLORIDE [Concomitant]
  12. DOCUSATE SODIUM [Concomitant]
  13. ONDANSETRON [Concomitant]
  14. PAROXETINE [Concomitant]
  15. POTASSIUM CHLORIDE [Concomitant]
  16. VITAMIN D (UNSPECIFIED) [Concomitant]

REACTIONS (13)
  - ASTHENIA [None]
  - BLOOD CREATININE INCREASED [None]
  - DIARRHOEA [None]
  - FATIGUE [None]
  - HAEMATURIA [None]
  - HEADACHE [None]
  - HYPERGLYCAEMIA [None]
  - NAUSEA [None]
  - THROMBOCYTOPENIA [None]
  - URETERIC OBSTRUCTION [None]
  - URINARY TRACT INFECTION [None]
  - VAGINAL HAEMORRHAGE [None]
  - VOMITING [None]
